FAERS Safety Report 16249598 (Version 2)
Quarter: 2020Q2

REPORT INFORMATION
  Report Type: Report from Study
  Country: KR (occurrence: KR)
  Receive Date: 20190429
  Receipt Date: 20200612
  Transmission Date: 20200713
  Serious: Yes (Hospitalization, Other)
  Sender: FDA-Public Use
  Company Number: KR-GLAXOSMITHKLINE-KR2018GSK238520

PATIENT
  Age: 71 Year
  Sex: Female
  Weight: 61 kg

DRUGS (10)
  1. TRESTAN [Concomitant]
     Indication: INCREASED APPETITE
     Dosage: 1 DF, BID
     Dates: start: 20170615
  2. ZABOFLOXACIN. [Concomitant]
     Active Substance: ZABOFLOXACIN
     Indication: BRONCHIECTASIS
     Dosage: UNK UNK, QD
     Dates: start: 20170615
  3. UMECLIDINIUM BR+VILANTEROL TRIFENATATE [Suspect]
     Active Substance: UMECLIDINIUM BROMIDE\VILANTEROL TRIFENATATE
     Indication: CHRONIC OBSTRUCTIVE PULMONARY DISEASE
     Dosage: 65.5/25MCG,QD
     Route: 055
     Dates: start: 20170615, end: 20170803
  4. SURFOLASE [Concomitant]
     Indication: PRODUCTIVE COUGH
     Dosage: 100 MG, BID
     Dates: start: 20161220
  5. ASIMA [Concomitant]
     Active Substance: DOXOFYLLINE
     Indication: CHRONIC OBSTRUCTIVE PULMONARY DISEASE
     Dosage: 400 MG, BID
     Dates: start: 20170418
  6. KLARICID [Concomitant]
     Active Substance: CLARITHROMYCIN
     Indication: BRONCHIECTASIS
     Dosage: 250 MG, BID
     Dates: start: 20170615
  7. UMECLIDINIUM BR+VILANTEROL TRIFENATATE [Suspect]
     Active Substance: UMECLIDINIUM BROMIDE\VILANTEROL TRIFENATATE
     Dosage: 65.5/25MCG,QD
     Route: 055
     Dates: start: 20170815
  8. PRANAIR [Concomitant]
     Indication: RHINITIS ALLERGIC
     Dosage: 112.5 MG, BID
     Dates: start: 20161220
  9. VENTOLIN [Concomitant]
     Active Substance: ALBUTEROL SULFATE
     Indication: CHRONIC OBSTRUCTIVE PULMONARY DISEASE
     Dosage: 1 PUFF(S), PRN
     Dates: start: 20170615
  10. PROMAC (POLAPREZINC) [Concomitant]
     Active Substance: POLAPREZINC
     Indication: GASTROINTESTINAL DISORDER PROPHYLAXIS
     Dosage: 75 MG, BID
     Dates: start: 20161220

REACTIONS (1)
  - Pneumonia [Recovered/Resolved]

NARRATIVE: CASE EVENT DATE: 20170803
